FAERS Safety Report 7626704-5 (Version None)
Quarter: 2011Q3

REPORT INFORMATION
  Report Type: 
  Country: None (occurrence: None)
  Receive Date: 20110721
  Receipt Date: 20110610
  Transmission Date: 20111222
  Serious: No
  Sender: FDA-Public Use
  Company Number: US-NOVEN-11US002616

PATIENT
  Sex: Male

DRUGS (2)
  1. FENTANYL [Suspect]
     Indication: SARCOMA
     Dosage: 100 UG, Q48H
     Route: 062
     Dates: start: 20110605
  2. FENTANYL [Suspect]
     Dosage: 75 UG, Q48H
     Route: 062
     Dates: start: 20110605

REACTIONS (3)
  - APPLICATION SITE PAIN [None]
  - PRODUCT QUALITY ISSUE [None]
  - APPLICATION SITE ERYTHEMA [None]
